FAERS Safety Report 12825900 (Version 1)
Quarter: 2016Q4

REPORT INFORMATION
  Report Type: Spontaneous
  Country: US (occurrence: US)
  Receive Date: 20161007
  Receipt Date: 20161007
  Transmission Date: 20170207
  Serious: No
  Sender: FDA-Public Use
  Company Number: US-WATSON-2015-19171

PATIENT
  Sex: Male
  Weight: 117 kg

DRUGS (6)
  1. FENTANYL CITRATE (WATSON LABORATORIES) [Suspect]
     Active Substance: FENTANYL CITRATE
     Indication: PAIN
     Dosage: 12 MCG, UNKNOWN
     Route: 065
  2. LYRICA [Suspect]
     Active Substance: PREGABALIN
     Dosage: 75 MG, UNK
     Route: 065
  3. LYRICA [Suspect]
     Active Substance: PREGABALIN
     Indication: NEUROPATHY PERIPHERAL
     Dosage: 300 MG, QAM/QPM
     Route: 065
  4. LYRICA [Suspect]
     Active Substance: PREGABALIN
     Dosage: 225 MG, BID
     Route: 065
  5. FENTANYL-25 (WATSON LABORATORIES) [Suspect]
     Active Substance: FENTANYL
     Indication: PAIN
     Dosage: 25 MCG, UNKNOWN
     Route: 062
  6. LYRICA [Suspect]
     Active Substance: PREGABALIN
     Dosage: 150 UNK, UNK
     Route: 065

REACTIONS (4)
  - Dyspnoea [Unknown]
  - Pain [Not Recovered/Not Resolved]
  - Drug ineffective [Not Recovered/Not Resolved]
  - Off label use [Not Recovered/Not Resolved]
